FAERS Safety Report 14580887 (Version 1)
Quarter: 2018Q1

REPORT INFORMATION
  Report Type: Report from Study
  Country: US (occurrence: US)
  Receive Date: 20180228
  Receipt Date: 20180228
  Transmission Date: 20180509
  Serious: Yes (Hospitalization)
  Sender: FDA-Public Use
  Company Number: US-ROCHE-2078722

PATIENT
  Sex: Male
  Weight: 111.23 kg

DRUGS (2)
  1. ZELBORAF [Suspect]
     Active Substance: VEMURAFENIB
     Indication: MALIGNANT MELANOMA STAGE IV
     Route: 065
     Dates: start: 2017, end: 20180213
  2. COTELLIC [Suspect]
     Active Substance: COBIMETINIB
     Indication: MALIGNANT MELANOMA STAGE IV
     Route: 065
     Dates: start: 2017, end: 20180213

REACTIONS (3)
  - Eye disorder [Unknown]
  - Blindness [Unknown]
  - Eye swelling [Unknown]
